FAERS Safety Report 16634398 (Version 4)
Quarter: 2019Q3

REPORT INFORMATION
  Report Type: Report from Study
  Country: CA (occurrence: CA)
  Receive Date: 20190726
  Receipt Date: 20190812
  Transmission Date: 20191004
  Serious: Yes (Death, Hospitalization)
  Sender: FDA-Public Use
  Company Number: CA-ACTELION-A-CH2019-193433

PATIENT
  Age: 66 Year
  Sex: Female
  Weight: 53 kg

DRUGS (13)
  1. UPTRAVI [Suspect]
     Active Substance: SELEXIPAG
     Indication: PULMONARY ARTERIAL HYPERTENSION
     Dosage: 200 MCG, BID
     Route: 048
     Dates: start: 20190708, end: 20190712
  2. CANNABIS [Concomitant]
     Active Substance: CANNABIS SATIVA SUBSP. INDICA TOP
  3. ROSUVASTATIN. [Concomitant]
     Active Substance: ROSUVASTATIN
     Dosage: 5 MG, QD
  4. OXYGEN. [Concomitant]
     Active Substance: OXYGEN
     Dosage: 3 L, PER MIN
  5. ELIQUIS [Concomitant]
     Active Substance: APIXABAN
     Dosage: 5 MG, BID
  6. OXYGEN. [Concomitant]
     Active Substance: OXYGEN
     Dosage: 6 L, PER MIN
     Route: 048
  7. ZOLPIDEM [Concomitant]
     Active Substance: ZOLPIDEM TARTRATE
     Dosage: 7.5 MG, PRN
  8. ADCIRCA [Suspect]
     Active Substance: TADALAFIL
     Indication: PULMONARY ARTERIAL HYPERTENSION
     Dosage: 40 MG, QD
     Route: 048
     Dates: start: 20190410, end: 20190718
  9. UPTRAVI [Suspect]
     Active Substance: SELEXIPAG
     Dosage: 400 MCG, BID
     Route: 048
     Dates: start: 20190713, end: 20190717
  10. SERTRALINE [Concomitant]
     Active Substance: SERTRALINE HYDROCHLORIDE
     Dosage: 25 MG, QD
  11. UPTRAVI [Suspect]
     Active Substance: SELEXIPAG
     Dosage: 200 MCG, BID
     Route: 048
     Dates: start: 20190717, end: 20190718
  12. FUROSEMIDE. [Concomitant]
     Active Substance: FUROSEMIDE
     Dosage: 20 MG, BID
  13. PANTOPRAZOLE [Concomitant]
     Active Substance: PANTOPRAZOLE
     Dosage: 40 MG, QD

REACTIONS (10)
  - Treatment failure [Unknown]
  - Right ventricular failure [Fatal]
  - Concomitant disease aggravated [Fatal]
  - Oxygen saturation decreased [Not Recovered/Not Resolved]
  - Pulmonary oedema [Not Recovered/Not Resolved]
  - Pulmonary veno-occlusive disease [Not Recovered/Not Resolved]
  - Pleural effusion [Unknown]
  - Pulmonary arterial hypertension [Fatal]
  - Concomitant disease progression [Not Recovered/Not Resolved]
  - Myocardial fibrosis [Not Recovered/Not Resolved]

NARRATIVE: CASE EVENT DATE: 20190711
